FAERS Safety Report 9060755 (Version 2)
Quarter: 2013Q2

REPORT INFORMATION
  Report Type: Spontaneous
  Country: FR (occurrence: FR)
  Receive Date: 20130204
  Receipt Date: 20130625
  Transmission Date: 20140414
  Serious: Yes (Other)
  Sender: FDA-Public Use
  Company Number: FR-ROCHE-1186358

PATIENT
  Age: 55 Year
  Sex: Female

DRUGS (10)
  1. AVASTIN [Suspect]
     Indication: PRODUCT USED FOR UNKNOWN INDICATION
     Route: 042
     Dates: start: 201206, end: 201208
  2. AVASTIN [Suspect]
     Route: 042
     Dates: start: 201209
  3. AVASTIN [Suspect]
     Route: 042
     Dates: start: 20121017
  4. AVASTIN [Suspect]
     Route: 042
     Dates: end: 20121031
  5. METHYLPREDNISOLONE [Suspect]
     Indication: PREMEDICATION
     Route: 042
     Dates: start: 20121017
  6. METHYLPREDNISOLONE [Suspect]
     Route: 042
     Dates: start: 20130214
  7. ZOPHREN [Concomitant]
     Indication: PREMEDICATION
     Route: 042
  8. FOLINIC ACID [Concomitant]
  9. FLUOROURACIL [Concomitant]
  10. OXALIPLATIN [Concomitant]

REACTIONS (4)
  - Tremor [Recovered/Resolved]
  - Rash [Recovered/Resolved]
  - Back pain [Recovered/Resolved]
  - Vomiting [Recovered/Resolved]
